FAERS Safety Report 24572601 (Version 1)
Quarter: 2024Q4

REPORT INFORMATION
  Report Type: Spontaneous
  Country: GR (occurrence: GR)
  Receive Date: 20241101
  Receipt Date: 20241101
  Transmission Date: 20250114
  Serious: Yes (Other)
  Sender: NOVARTIS
  Company Number: GR-002147023-NVSC2024GR211231

PATIENT
  Age: 75 Year
  Sex: Male

DRUGS (3)
  1. DABRAFENIB\TRAMETINIB [Suspect]
     Active Substance: DABRAFENIB\TRAMETINIB
     Indication: Malignant melanoma
     Dosage: UNK
     Route: 065
  2. ALITRETINOIN [Concomitant]
     Active Substance: ALITRETINOIN
     Indication: Kaposi^s sarcoma
     Dosage: UNK
     Route: 065
  3. PREDNISOLONE [Concomitant]
     Active Substance: PREDNISOLONE
     Indication: Rheumatoid arthritis
     Dosage: UNK
     Route: 065
     Dates: start: 2021

REACTIONS (2)
  - Kaposi^s sarcoma [Recovered/Resolved]
  - Condition aggravated [Recovered/Resolved]
